FAERS Safety Report 14627836 (Version 1)
Quarter: 2018Q1

REPORT INFORMATION
  Report Type: Spontaneous
  Country: US (occurrence: US)
  Receive Date: 20180312
  Receipt Date: 20180312
  Transmission Date: 20180509
  Serious: Yes (Other)
  Sender: FDA-Public Use
  Company Number: US-BIOMARINAP-US-2018-117410

PATIENT
  Age: 5 Year
  Sex: Male
  Weight: 17.1 kg

DRUGS (1)
  1. NAGLAZYME [Suspect]
     Active Substance: GALSULFASE
     Indication: PRODUCT USED FOR UNKNOWN INDICATION
     Dosage: 15 MG, QW
     Route: 042
     Dates: start: 201508

REACTIONS (6)
  - Skin discolouration [Unknown]
  - Pallor [Unknown]
  - Oxygen saturation decreased [Recovering/Resolving]
  - Blood pressure increased [Unknown]
  - Nasopharyngitis [Unknown]
  - Lethargy [Unknown]

NARRATIVE: CASE EVENT DATE: 20180302
